FAERS Safety Report 11911970 (Version 1)
Quarter: 2016Q1

REPORT INFORMATION
  Report Type: Spontaneous
  Country: US (occurrence: US)
  Receive Date: 20160112
  Receipt Date: 20160112
  Transmission Date: 20160526
  Serious: No
  Sender: FDA-Public Use
  Company Number: US-009507513-1512USA014644

PATIENT
  Age: 66 Year
  Sex: Male

DRUGS (13)
  1. PROVENTIL [Suspect]
     Active Substance: ALBUTEROL
     Indication: DYSPHONIA
  2. CARVEDILOL. [Concomitant]
     Active Substance: CARVEDILOL
  3. ASPIRIN. [Concomitant]
     Active Substance: ASPIRIN
  4. DIVALPROEX SODIUM. [Concomitant]
     Active Substance: DIVALPROEX SODIUM
  5. PROVENTIL [Suspect]
     Active Substance: ALBUTEROL
     Indication: CHEST PAIN
     Route: 055
  6. FORADIL [Concomitant]
     Active Substance: FORMOTEROL FUMARATE
     Dosage: UNK
     Dates: start: 2009, end: 20151228
  7. PLAVIX [Concomitant]
     Active Substance: CLOPIDOGREL BISULFATE
  8. PROVENTIL [Suspect]
     Active Substance: ALBUTEROL
     Indication: FATIGUE
  9. LOSARTAN. [Concomitant]
     Active Substance: LOSARTAN
  10. SYMBICORT [Concomitant]
     Active Substance: BUDESONIDE\FORMOTEROL FUMARATE DIHYDRATE
     Dosage: UNK
     Dates: start: 20151229
  11. FUROSEMIDE. [Concomitant]
     Active Substance: FUROSEMIDE
  12. PROVENTIL [Suspect]
     Active Substance: ALBUTEROL
     Indication: DYSPNOEA
  13. ASMANEX [Concomitant]
     Active Substance: MOMETASONE FUROATE
     Dosage: UNK
     Route: 055
     Dates: start: 2009, end: 20151228

REACTIONS (1)
  - Drug ineffective [Recovering/Resolving]

NARRATIVE: CASE EVENT DATE: 20151229
